FAERS Safety Report 6789293-3 (Version None)
Quarter: 2010Q2

REPORT INFORMATION
  Report Type: 
  Country: None (occurrence: None)
  Receive Date: 20100623
  Receipt Date: 20090528
  Transmission Date: 20101027
  Serious: Yes (Other)
  Sender: FDA-Public Use
  Company Number: US-PFIZER INC-2008052351

PATIENT
  Sex: Female

DRUGS (9)
  1. PROVERA [Suspect]
     Indication: HORMONE REPLACEMENT THERAPY
     Dosage: 2.5 MG, UNK
     Route: 048
     Dates: start: 19940101, end: 20000907
  2. MEDROXYPROGESTERONE ACETATE [Suspect]
     Indication: HORMONE REPLACEMENT THERAPY
     Route: 048
     Dates: start: 19951101, end: 20000901
  3. PREMARIN [Suspect]
     Indication: HORMONE REPLACEMENT THERAPY
     Dosage: 0.625 MG, UNK
     Dates: start: 19940101, end: 20000907
  4. PREMPRO [Suspect]
     Indication: HORMONE REPLACEMENT THERAPY
     Dosage: 0.625/2.5MG
     Dates: start: 20000907, end: 20010905
  5. ASPIRIN [Concomitant]
     Dosage: UNK
     Dates: start: 19900101
  6. THYROID [Concomitant]
     Indication: HYPOTHYROIDISM
     Dosage: UNK
     Dates: start: 19981113
  7. MULTI-VITAMINS [Concomitant]
     Indication: MEDICAL DIET
     Dosage: UNK
     Dates: start: 19700101
  8. VITAMIN C [Concomitant]
     Indication: MEDICAL DIET
     Dosage: UNK
     Dates: start: 19700101
  9. OMEGA 3/VITAMIN E [Concomitant]
     Indication: MEDICAL DIET
     Dosage: UNK
     Dates: start: 19900101

REACTIONS (1)
  - BREAST CANCER [None]
